FAERS Safety Report 10229347 (Version 1)
Quarter: 2014Q2

REPORT INFORMATION
  Report Type: Report from Study
  Country: US (occurrence: US)
  Receive Date: 20140611
  Receipt Date: 20140611
  Transmission Date: 20141212
  Serious: Yes (Hospitalization)
  Sender: FDA-Public Use
  Company Number: US-MYLANLABS-2014S1012883

PATIENT
  Sex: Male

DRUGS (10)
  1. CLOZAPINE TABLETS [Suspect]
     Indication: PSYCHOTIC DISORDER
     Route: 048
     Dates: end: 20140520
  2. CLOZAPINE TABLETS [Suspect]
     Indication: PSYCHOTIC DISORDER
     Route: 048
     Dates: start: 20140521, end: 20140522
  3. CLOZAPINE TABLETS [Suspect]
     Indication: PSYCHOTIC DISORDER
     Route: 048
     Dates: start: 20140523, end: 20140523
  4. AMLODIPINE [Concomitant]
  5. ABILIFY [Concomitant]
     Dates: start: 20140521, end: 20140522
  6. HYDROXYZINE [Concomitant]
     Indication: ANXIETY
  7. LOSARTAN [Concomitant]
  8. METFORMIN [Concomitant]
  9. SERTRALINE [Concomitant]
  10. NICORETTE /01033301/ [Concomitant]
     Dates: end: 20140524

REACTIONS (3)
  - Weight increased [Not Recovered/Not Resolved]
  - Anxiety [Recovered/Resolved]
  - Unevaluable event [Recovered/Resolved]
